FAERS Safety Report 16338859 (Version 1)
Quarter: 2019Q2

REPORT INFORMATION
  Report Type: Spontaneous
  Country: TR (occurrence: TR)
  Receive Date: 20190521
  Receipt Date: 20190521
  Transmission Date: 20190711
  Serious: Yes (Other)
  Sender: FDA-Public Use
  Company Number: PHHY2019TR113824

PATIENT
  Age: 42 Year
  Sex: Male

DRUGS (2)
  1. CLINDAMYCIN. [Suspect]
     Active Substance: CLINDAMYCIN
     Indication: SOFT TISSUE INFECTION
     Dosage: 2X600 MG
     Route: 030
  2. AMOXICILLIN + CLAVULANATE POTASSIUM [Suspect]
     Active Substance: AMOXICILLIN\CLAVULANATE POTASSIUM
     Indication: SOFT TISSUE INFECTION
     Dosage: 2X1GM
     Route: 048

REACTIONS (5)
  - Musculoskeletal stiffness [Unknown]
  - Trismus [Unknown]
  - Drug ineffective [Unknown]
  - Swelling [Unknown]
  - Jaw fistula [Unknown]
